FAERS Safety Report 6687051-1 (Version None)
Quarter: 2010Q2

REPORT INFORMATION
  Report Type: 
  Country: None (occurrence: None)
  Receive Date: 20100419
  Receipt Date: 20100413
  Transmission Date: 20101027
  Serious: Yes (Death, Hospitalization)
  Sender: FDA-Public Use
  Company Number: JP-ELI_LILLY_AND_COMPANY-JP200911006694

PATIENT
  Sex: Female
  Weight: 35 kg

DRUGS (11)
  1. ALIMTA [Suspect]
     Indication: LUNG ADENOCARCINOMA STAGE IV
     Dosage: 500 MG/M2, OTHER
     Route: 042
     Dates: start: 20091009, end: 20091009
  2. GEMZAR [Suspect]
     Indication: LUNG ADENOCARCINOMA STAGE IV
     Dosage: 1000 MG/M2, OTHER
     Route: 042
     Dates: start: 20090726, end: 20090726
  3. PANVITAN [Concomitant]
     Dosage: 1 G, DAILY (1/D)
     Route: 048
     Dates: start: 20091002, end: 20091101
  4. VITAMIN B12 NOS [Concomitant]
     Dosage: 1 MG, UNKNOWN
     Route: 030
     Dates: start: 20091002, end: 20091002
  5. TS-1 [Concomitant]
     Indication: LUNG ADENOCARCINOMA STAGE IV
     Dosage: 60 MG, UNKNOWN
     Route: 048
     Dates: start: 20090726, end: 20090726
  6. DOCETAXEL [Concomitant]
     Indication: LUNG ADENOCARCINOMA STAGE IV
     Dosage: 60 MG/M2, UNK
     Route: 042
     Dates: start: 20090805, end: 20090805
  7. DOCETAXEL [Concomitant]
     Dosage: 50 MG/M2, UNK
     Route: 042
     Dates: start: 20090827, end: 20090827
  8. EVISTA [Concomitant]
     Indication: OSTEOPOROSIS
     Dosage: 60 MG, DAILY (1/D)
     Route: 048
     Dates: start: 20090601, end: 20091101
  9. CALFINA [Concomitant]
     Indication: OSTEOPOROSIS
     Dosage: 35 UG, DAILY (1/D)
     Route: 048
     Dates: start: 20090601, end: 20091101
  10. SELBEX [Concomitant]
     Indication: GASTRITIS
     Dosage: 50 MG, 2/D
     Route: 048
     Dates: start: 20090801, end: 20091101
  11. MYSLEE [Concomitant]
     Indication: INSOMNIA
     Dosage: 5 MG, DAILY (1/D)
     Route: 048
     Dates: start: 20090801, end: 20091101

REACTIONS (4)
  - INTERSTITIAL LUNG DISEASE [None]
  - MALIGNANT NEOPLASM PROGRESSION [None]
  - RASH [None]
  - STEVENS-JOHNSON SYNDROME [None]
